FAERS Safety Report 6407312-0 (Version None)
Quarter: 2009Q4

REPORT INFORMATION
  Report Type: 
  Country: None (occurrence: None)
  Receive Date: 20091020
  Receipt Date: 20091014
  Transmission Date: 20100525
  Serious: Yes (Hospitalization)
  Sender: FDA-Public Use
  Company Number: A0812438A

PATIENT
  Sex: Female

DRUGS (3)
  1. SERETIDE [Suspect]
     Indication: CHRONIC OBSTRUCTIVE PULMONARY DISEASE
     Dosage: 1PUFF PER DAY
     Route: 055
     Dates: start: 20070101
  2. SPIRIVA [Concomitant]
     Dates: start: 20070101
  3. SINGULAIR [Concomitant]
     Dosage: 1TAB TWICE PER DAY
     Dates: start: 20070101

REACTIONS (1)
  - PULMONARY OEDEMA [None]
